FAERS Safety Report 8461724-2 (Version None)
Quarter: 2012Q2

REPORT INFORMATION
  Report Type: 
  Country: None (occurrence: None)
  Receive Date: 20120323
  Receipt Date: 20111007
  Transmission Date: 20120825
  Serious: Yes (Hospitalization)
  Sender: FDA-Public Use
  Company Number: 163-21880-11101014

PATIENT
  Age: 67 Year
  Sex: Male

DRUGS (11)
  1. ADRIAMYCIN PFS [Concomitant]
  2. LENALIDOMIDE [Suspect]
     Indication: MULTIPLE MYELOMA
     Dosage: SEE IMAGE
     Route: 048
     Dates: end: 20110401
  3. LENALIDOMIDE [Suspect]
     Indication: MULTIPLE MYELOMA
     Dosage: SEE IMAGE
     Route: 048
     Dates: start: 20080701, end: 20090401
  4. LENALIDOMIDE [Suspect]
     Indication: MULTIPLE MYELOMA
     Dosage: SEE IMAGE
     Route: 048
     Dates: start: 20071001
  5. LENALIDOMIDE [Suspect]
     Indication: MULTIPLE MYELOMA
     Dosage: SEE IMAGE
     Route: 048
     Dates: start: 20071101, end: 20080701
  6. LENALIDOMIDE [Suspect]
     Indication: MULTIPLE MYELOMA
     Dosage: SEE IMAGE
     Route: 048
     Dates: start: 20090601, end: 20101101
  7. DEXAMETHASONE [Concomitant]
  8. GABAPENTIN [Concomitant]
  9. ONDANSETRON (ONDANSETRON) (UNKNOWN) [Concomitant]
  10. OMEPRAZOLE [Concomitant]
  11. VINCRISTINE [Concomitant]

REACTIONS (1)
  - RENAL FAILURE ACUTE [None]
